FAERS Safety Report 14812455 (Version 1)
Quarter: 2018Q2

REPORT INFORMATION
  Report Type: Spontaneous
  Country: US (occurrence: US)
  Receive Date: 20180425
  Receipt Date: 20180425
  Transmission Date: 20180711
  Serious: No
  Sender: FDA-Public Use
  Company Number: US-AMGEN-USASP2018047429

PATIENT
  Sex: Female

DRUGS (2)
  1. REPATHA [Suspect]
     Active Substance: EVOLOCUMAB
     Indication: PRODUCT USED FOR UNKNOWN INDICATION
     Dosage: UNK
     Route: 065
     Dates: start: 201712, end: 201803
  2. REPATHA [Suspect]
     Active Substance: EVOLOCUMAB
     Dosage: 140 MG, Q2WK
     Route: 065

REACTIONS (7)
  - Swelling [Recovering/Resolving]
  - Inflammation [Recovering/Resolving]
  - Skin mass [Recovering/Resolving]
  - Pruritus [Recovering/Resolving]
  - Erythema [Recovering/Resolving]
  - Scab [Recovering/Resolving]
  - Rash macular [Recovering/Resolving]

NARRATIVE: CASE EVENT DATE: 201803
